FAERS Safety Report 14448116 (Version 1)
Quarter: 2018Q1

REPORT INFORMATION
  Report Type: Spontaneous
  Country: TW (occurrence: TW)
  Receive Date: 20180126
  Receipt Date: 20180126
  Transmission Date: 20180509
  Serious: Yes (Death, Life-Threatening, Other)
  Sender: FDA-Public Use
  Company Number: TW-ELI_LILLY_AND_COMPANY-TW201801009104

PATIENT
  Age: 52 Year
  Sex: Male

DRUGS (1)
  1. CYRAMZA [Suspect]
     Active Substance: RAMUCIRUMAB
     Indication: COLORECTAL CANCER
     Dosage: 8 MG/KG, EVERY 2 WEEKS
     Route: 042
     Dates: start: 20180105

REACTIONS (3)
  - Respiratory failure [Fatal]
  - Nasal septum perforation [Unknown]
  - Epistaxis [Unknown]

NARRATIVE: CASE EVENT DATE: 20180112
